FAERS Safety Report 4733476-0 (Version None)
Quarter: 2005Q3

REPORT INFORMATION
  Report Type: 
  Country: None (occurrence: None)
  Receive Date: 20050725
  Receipt Date: 20040908
  Transmission Date: 20060218
  Serious: Yes (Death)
  Sender: FDA-Public Use
  Company Number: KII-2001-0003173

PATIENT
  Age: 42 Year
  Sex: Female

DRUGS (1)
  1. MS CONTIN [Suspect]

REACTIONS (1)
  - MULTIPLE DRUG OVERDOSE [None]
